FAERS Safety Report 24456446 (Version 2)
Quarter: 2024Q4

REPORT INFORMATION
  Report Type: Report from Study
  Country: US (occurrence: US)
  Receive Date: 20241017
  Receipt Date: 20241018
  Transmission Date: 20250115
  Serious: No
  Sender: ROCHE
  Company Number: US-ROCHE-3508435

PATIENT
  Age: 81 Year
  Sex: Female
  Weight: 67.59 kg

DRUGS (9)
  1. RITUXAN [Suspect]
     Active Substance: RITUXIMAB
     Indication: Rheumatoid arthritis
     Dosage: 1000 MG ON DAY 1 AND 15 THEN EVERY 6 MONTHS
     Route: 041
     Dates: start: 201501, end: 2018
  2. PROAIR HFA [Concomitant]
     Active Substance: ALBUTEROL SULFATE
  3. ZYLOPRIM [Concomitant]
     Active Substance: ALLOPURINOL
  4. ROCALTROL [Concomitant]
     Active Substance: CALCITRIOL
  5. CELEXA [Concomitant]
     Active Substance: CITALOPRAM HYDROBROMIDE
  6. PEPCID [Concomitant]
     Active Substance: FAMOTIDINE
  7. LASIX [Concomitant]
     Active Substance: FUROSEMIDE
  8. DELTASONE [Concomitant]
     Active Substance: PREDNISONE
  9. ZOCOR [Concomitant]
     Active Substance: SIMVASTATIN

REACTIONS (5)
  - Ureterolithiasis [Unknown]
  - Nephrolithiasis [Unknown]
  - Vitamin D deficiency [Unknown]
  - Asthenia [Unknown]
  - Diarrhoea [Unknown]

NARRATIVE: CASE EVENT DATE: 20150121
